FAERS Safety Report 7068022-2 (Version None)
Quarter: 2010Q4

REPORT INFORMATION
  Report Type: 
  Country: None (occurrence: None)
  Receive Date: 20101028
  Receipt Date: 20101019
  Transmission Date: 20110411
  Serious: Yes (Hospitalization, Other)
  Sender: FDA-Public Use
  Company Number: US-ASTRAZENECA-2010SE43765

PATIENT
  Age: 18658 Day
  Sex: Female
  Weight: 99.8 kg

DRUGS (17)
  1. NEXIUM [Suspect]
     Route: 048
     Dates: end: 20100507
  2. PRILOSEC [Suspect]
     Dosage: DAILY
     Route: 048
     Dates: start: 19890101
  3. NORVASC [Concomitant]
  4. NORVASC [Concomitant]
  5. JANUVIA [Concomitant]
     Indication: TYPE 2 DIABETES MELLITUS
  6. SIMVASTATIN [Concomitant]
     Route: 048
  7. BENICAR [Concomitant]
     Route: 048
  8. GLIMEPIRIDE [Concomitant]
  9. MAGNESIUM OXIDE [Concomitant]
  10. KLONOPIN [Concomitant]
     Dosage: AS NEEDED
  11. TRAMADOL HCL [Concomitant]
     Indication: BACK PAIN
     Dosage: AS REQUIRED
  12. TRAZODONE HCL [Concomitant]
     Dosage: 1-3  AS REQUIRED
  13. SOMA [Concomitant]
     Dosage: AS REQUIRED
  14. COMBIVENT [Concomitant]
     Route: 048
  15. ZYRTEC [Concomitant]
     Route: 048
  16. AMARYL [Concomitant]
  17. LANTUS [Concomitant]
     Dosage: 100 UNITS/ML

REACTIONS (55)
  - ABSCESS [None]
  - AGITATION [None]
  - APATHY [None]
  - APNOEA [None]
  - ARRHYTHMIA [None]
  - BARRETT'S OESOPHAGUS [None]
  - BLOOD PRESSURE FLUCTUATION [None]
  - CELLULITIS [None]
  - CHANGE OF BOWEL HABIT [None]
  - CHEST DISCOMFORT [None]
  - CONFUSIONAL STATE [None]
  - CONJUNCTIVITIS [None]
  - CYSTITIS [None]
  - DEAFNESS [None]
  - DELIRIUM [None]
  - DIARRHOEA [None]
  - DIVERTICULUM INTESTINAL [None]
  - DYSPNOEA [None]
  - EAR PAIN [None]
  - ELECTROLYTE IMBALANCE [None]
  - FATIGUE [None]
  - GASTRITIS [None]
  - GENERALISED ANXIETY DISORDER [None]
  - HAEMORRHOIDS [None]
  - HEARING IMPAIRED [None]
  - HEART RATE INCREASED [None]
  - HIATUS HERNIA [None]
  - HYPOAESTHESIA [None]
  - HYPOMAGNESAEMIA [None]
  - INSOMNIA [None]
  - IRRITABILITY [None]
  - LEARNING DISORDER [None]
  - MEMORY IMPAIRMENT [None]
  - MENTAL STATUS CHANGES [None]
  - MITRAL VALVE PROLAPSE [None]
  - MUSCLE SPASMS [None]
  - MUSCLE TWITCHING [None]
  - MUSCULAR WEAKNESS [None]
  - NASAL CONGESTION [None]
  - NAUSEA [None]
  - PARAESTHESIA [None]
  - PERSONALITY CHANGE [None]
  - PERSONALITY DISORDER [None]
  - POLYURIA [None]
  - PRURITUS [None]
  - PULMONARY HYPERTENSION [None]
  - SOMATISATION DISORDER [None]
  - STEATORRHOEA [None]
  - STRESS URINARY INCONTINENCE [None]
  - TINNITUS [None]
  - TREMOR [None]
  - TYMPANIC MEMBRANE PERFORATION [None]
  - VERTIGO [None]
  - VISION BLURRED [None]
  - VOMITING [None]
